FAERS Safety Report 7034722-3 (Version None)
Quarter: 2010Q4

REPORT INFORMATION
  Report Type: 
  Country: None (occurrence: None)
  Receive Date: 20101008
  Receipt Date: 20100923
  Transmission Date: 20110411
  Serious: Yes (Disabling, Other)
  Sender: FDA-Public Use
  Company Number: PHHY2008DE36125

PATIENT
  Sex: Male
  Weight: 105 kg

DRUGS (1)
  1. BEGRIVAC V-V903+INJ [Suspect]
     Dosage: .5 ML
     Dates: start: 19951222, end: 19951222

REACTIONS (27)
  - ARTHRITIS [None]
  - ARTHROPATHY [None]
  - AUTOIMMUNE DISORDER [None]
  - COLLAGEN DISORDER [None]
  - CONTINUOUS POSITIVE AIRWAY PRESSURE [None]
  - DERMATOMYOSITIS [None]
  - DYSPHAGIA [None]
  - ERYTHEMA [None]
  - HYPERTENSION [None]
  - HYPOTONIA [None]
  - IMMUNOGLOBULINS INCREASED [None]
  - INFLAMMATION [None]
  - JOINT INSTABILITY [None]
  - MONONEUROPATHY MULTIPLEX [None]
  - MUSCLE ATROPHY [None]
  - MUSCLE CONTRACTIONS INVOLUNTARY [None]
  - MUSCLE FATIGUE [None]
  - MUSCULAR WEAKNESS [None]
  - MUSCULOSKELETAL PAIN [None]
  - MYALGIA [None]
  - OEDEMA PERIPHERAL [None]
  - POLYMYOSITIS [None]
  - PULMONARY FUNCTION TEST DECREASED [None]
  - RESPIRATORY DISORDER [None]
  - SENSORY DISTURBANCE [None]
  - SLEEP APNOEA SYNDROME [None]
  - VASCULITIS [None]
